FAERS Safety Report 11917988 (Version 2)
Quarter: 2016Q1

REPORT INFORMATION
  Report Type: Report from Study
  Country: US (occurrence: US)
  Receive Date: 20160114
  Receipt Date: 20160209
  Transmission Date: 20160526
  Serious: Yes (Hospitalization, Other)
  Sender: FDA-Public Use
  Company Number: US-GILEAD-2015-0181072

PATIENT
  Age: 35 Year
  Sex: Female

DRUGS (8)
  1. AMBRISENTAN [Suspect]
     Active Substance: AMBRISENTAN
     Indication: PULMONARY HYPERTENSION
     Dosage: 10 MG, QD
     Route: 048
     Dates: start: 20120816
  2. DIGOXIN. [Concomitant]
     Active Substance: DIGOXIN
     Dosage: .125 UNK, UNK
  3. ASA [Concomitant]
     Active Substance: ASPIRIN
     Dosage: 81 UNK, UNK
  4. PREDNISONE. [Concomitant]
     Active Substance: PREDNISONE
     Dosage: 20 UNK, UNK
  5. AMBRISENTAN [Suspect]
     Active Substance: AMBRISENTAN
     Indication: CONNECTIVE TISSUE DISORDER
  6. ALDACTONE [Concomitant]
     Active Substance: SPIRONOLACTONE
     Dosage: 25 UNK, UNK
  7. LASIX [Concomitant]
     Active Substance: FUROSEMIDE
     Dosage: 20 UNK, UNK
  8. IRON [Concomitant]
     Active Substance: IRON
     Dosage: 325 UNK, UNK

REACTIONS (3)
  - Connective tissue disorder [Recovering/Resolving]
  - Thrombocytopenia [Unknown]
  - Neutropenia [Unknown]

NARRATIVE: CASE EVENT DATE: 20151026
